FAERS Safety Report 14877476 (Version 2)
Quarter: 2018Q2

REPORT INFORMATION
  Report Type: Report from Study
  Country: US (occurrence: US)
  Receive Date: 20180510
  Receipt Date: 20180518
  Transmission Date: 20180711
  Serious: Yes (Death, Other)
  Sender: FDA-Public Use
  Company Number: US-SHIRE-US201817315

PATIENT
  Age: 73 Year
  Sex: Male

DRUGS (1)
  1. GATTEX [Suspect]
     Active Substance: TEDUGLUTIDE\WATER
     Indication: SHORT-BOWEL SYNDROME
     Dosage: 3.65 MG, 1X/DAY:QD
     Route: 058
     Dates: start: 20180201, end: 20180421

REACTIONS (4)
  - Intestinal ischaemia [Unknown]
  - Death [Fatal]
  - Hypotension [Fatal]
  - Haematoma [Unknown]

NARRATIVE: CASE EVENT DATE: 20180422
